FAERS Safety Report 21698181 (Version 2)
Quarter: 2023Q1

REPORT INFORMATION
  Report Type: Other
  Country: US (occurrence: None)
  Receive Date: 20221208
  Receipt Date: 20230112
  Transmission Date: 20230417
  Serious: Yes (Other)
  Sender: FDA-Public Use
  Company Number: US-ROCHE-3230256

PATIENT
  Age: 53 Year
  Sex: Female
  Weight: 61.290 kg

DRUGS (1)
  1. OCREVUS [Suspect]
     Active Substance: OCRELIZUMAB
     Indication: Relapsing-remitting multiple sclerosis
     Dosage: YES; DOT: 09/MAY/2022, 08/NOV/2021, 16/APR/2021, 05/MAY/2021
     Route: 042
     Dates: start: 20210402

REACTIONS (6)
  - Urinary tract infection [Not Recovered/Not Resolved]
  - Vulvovaginal discomfort [Not Recovered/Not Resolved]
  - Acne [Not Recovered/Not Resolved]
  - Haemorrhage [Not Recovered/Not Resolved]
  - Alopecia [Not Recovered/Not Resolved]
  - Hair growth abnormal [Not Recovered/Not Resolved]
